FAERS Safety Report 6912034-3 (Version None)
Quarter: 2010Q3

REPORT INFORMATION
  Report Type: 
  Country: None (occurrence: None)
  Receive Date: 20100806
  Receipt Date: 20080107
  Transmission Date: 20110219
  Serious: No
  Sender: FDA-Public Use
  Company Number: US-PFIZER INC-2008003822

PATIENT
  Sex: Female
  Weight: 39.01 kg

DRUGS (2)
  1. DILANTIN [Suspect]
     Indication: CONVULSION
     Dosage: INTERVAL: EVERY DAY
     Dates: start: 19870101
  2. CARDIZEM [Concomitant]

REACTIONS (1)
  - DISORIENTATION [None]
